FAERS Safety Report 19793480 (Version 2)
Quarter: 2021Q3

REPORT INFORMATION
  Report Type: Spontaneous
  Country: DE (occurrence: DE)
  Receive Date: 20210906
  Receipt Date: 20210930
  Transmission Date: 20211014
  Serious: Yes (Other)
  Sender: FDA-Public Use
  Company Number: DE-TOLMAR, INC.-21DE030012

PATIENT
  Sex: Male

DRUGS (1)
  1. ELIGARD [Suspect]
     Active Substance: LEUPROLIDE ACETATE
     Indication: PRODUCT USED FOR UNKNOWN INDICATION
     Dosage: 22.5 MILLIGRAM
     Route: 058

REACTIONS (27)
  - Thrombosis [Unknown]
  - Spontaneous haemorrhage [Unknown]
  - Breast swelling [Unknown]
  - Eructation [Unknown]
  - Red blood cell count decreased [Unknown]
  - Weight increased [Unknown]
  - Fatigue [Unknown]
  - Abdominal distension [Unknown]
  - Paraesthesia [Unknown]
  - Hyperhidrosis [Unknown]
  - Arthralgia [Unknown]
  - Injection site pain [Unknown]
  - Palpitations [Unknown]
  - Muscular weakness [Unknown]
  - Insomnia [Unknown]
  - Lethargy [Unknown]
  - Osteoporosis [Unknown]
  - Coagulation time prolonged [Unknown]
  - Cold sweat [Unknown]
  - Night sweats [Unknown]
  - Asthenia [Unknown]
  - Hot flush [Unknown]
  - Rash pustular [Unknown]
  - Dyspnoea [Unknown]
  - Erythema [Unknown]
  - Gynaecomastia [Unknown]
  - Breast pain [Unknown]
